FAERS Safety Report 5008432-8 (Version None)
Quarter: 2006Q2

REPORT INFORMATION
  Report Type: 
  Country: None (occurrence: None)
  Receive Date: 20060522
  Receipt Date: 20060522
  Transmission Date: 20061013
  Serious: Yes (Other)
  Sender: FDA-Public Use
  Company Number: None

PATIENT
  Age: 44 Year
  Sex: Female
  Weight: 83.9154 kg

DRUGS (2)
  1. LAMICTAL [Suspect]
     Indication: COMPLEX PARTIAL SEIZURES
     Dosage: 50 MG PO Q AM
     Route: 048
     Dates: start: 20060315, end: 20060320
  2. SERTRALINE [Concomitant]

REACTIONS (1)
  - DIARRHOEA HAEMORRHAGIC [None]
